FAERS Safety Report 7889552-7 (Version None)
Quarter: 2011Q4

REPORT INFORMATION
  Report Type: 
  Country: None (occurrence: None)
  Receive Date: 20111103
  Receipt Date: 20101217
  Transmission Date: 20120403
  Serious: No
  Sender: FDA-Public Use
  Company Number: US-BRISTOL-MYERS SQUIBB COMPANY-15449598

PATIENT
  Age: 30 Year
  Sex: Female
  Weight: 75 kg

DRUGS (2)
  1. KENALOG-40 [Suspect]
     Indication: SINUSITIS
     Dates: start: 20101209
  2. AVELOX [Concomitant]

REACTIONS (1)
  - WEIGHT INCREASED [None]
